FAERS Safety Report 17121679 (Version 1)
Quarter: 2019Q4

REPORT INFORMATION
  Report Type: Spontaneous
  Country: SE (occurrence: SE)
  Receive Date: 20191206
  Receipt Date: 20191206
  Transmission Date: 20200122
  Serious: Yes (Life-Threatening, Other)
  Sender: FDA-Public Use
  Company Number: SE-BAYER-2019-217913

PATIENT
  Age: 38 Year
  Sex: Female

DRUGS (1)
  1. LEVONORGESTREL IUS [UNKNOWN] [Suspect]
     Active Substance: LEVONORGESTREL
     Route: 015

REACTIONS (4)
  - Drug ineffective [None]
  - Intra-abdominal haemorrhage [None]
  - Ectopic pregnancy with contraceptive device [None]
  - Infertility female [None]

NARRATIVE: CASE EVENT DATE: 2013
